FAERS Safety Report 21162341 (Version 1)
Quarter: 2022Q3

REPORT INFORMATION
  Report Type: Report from Study
  Country: IN (occurrence: IN)
  Receive Date: 20220802
  Receipt Date: 20220802
  Transmission Date: 20221027
  Serious: Yes (Death)
  Sender: FDA-Public Use
  Company Number: IN-MYLANLABS-2022M1082850

PATIENT
  Age: 66 Year
  Sex: Female

DRUGS (9)
  1. DOXORUBICIN [Suspect]
     Active Substance: DOXORUBICIN
     Indication: B-cell lymphoma
     Dosage: PART OF CHOP-GCD-CCEP REGIMEN
     Route: 065
  2. GEMCITABINE [Suspect]
     Active Substance: GEMCITABINE
     Indication: B-cell lymphoma
     Dosage: PART OF CHOP-GCD-CCEP REGIMEN
     Route: 065
  3. ETOPOSIDE [Suspect]
     Active Substance: ETOPOSIDE
     Indication: B-cell lymphoma
     Dosage: PART OF CHOP-GCD-CCEP REGIMEN
     Route: 065
  4. CYCLOPHOSPHAMIDE [Suspect]
     Active Substance: CYCLOPHOSPHAMIDE
     Indication: B-cell lymphoma
     Dosage: PART OF CHOP-GCD-CCEP REGIMEN
     Route: 065
  5. ONCOVIN [Suspect]
     Active Substance: VINCRISTINE SULFATE
     Indication: B-cell lymphoma
     Dosage: PART OF CHOP-GCD-CCEP REGIMEN
     Route: 065
  6. DEXAMETHASONE [Suspect]
     Active Substance: DEXAMETHASONE
     Indication: B-cell lymphoma
     Dosage: PART OF CHOP-GCD-CCEP REGIMEN
     Route: 065
  7. PREDNISOLONE [Suspect]
     Active Substance: PREDNISOLONE
     Indication: B-cell lymphoma
     Dosage: PART OF CHOP-GCD-CCEP REGIMEN
     Route: 065
  8. PROCARBAZINE [Suspect]
     Active Substance: PROCARBAZINE
     Indication: B-cell lymphoma
     Dosage: PART OF CHOP-GCD-CCEP REGIMEN
     Route: 065
  9. CRIZOTINIB [Suspect]
     Active Substance: CRIZOTINIB
     Indication: B-cell lymphoma
     Dosage: PART OF CHOP-GCD-CCEP REGIMEN
     Route: 065

REACTIONS (1)
  - Drug ineffective [Fatal]
